FAERS Safety Report 23262054 (Version 1)
Quarter: 2023Q4

REPORT INFORMATION
  Report Type: Spontaneous
  Country: US (occurrence: US)
  Receive Date: 20231205
  Receipt Date: 20231205
  Transmission Date: 20240110
  Serious: No
  Sender: FDA-Public Use
  Company Number: US-PFIZER INC-202300373111

PATIENT
  Age: 32 Year
  Sex: Female
  Weight: 60.4 kg

DRUGS (5)
  1. BENEFIX [Suspect]
     Active Substance: COAGULATION FACTOR IX RECOMBINANT HUMAN\ISOPROPYL ALCOHOL
     Dosage: UNK
  2. DEPAKOTE [Concomitant]
     Active Substance: DIVALPROEX SODIUM
     Dosage: 750 MG, DAILY
  3. DIVALPROEX SODIUM [Concomitant]
     Active Substance: DIVALPROEX SODIUM
     Dosage: UNK
  4. PEPCID [Concomitant]
     Active Substance: FAMOTIDINE
     Dosage: 20 MG, 2X/DAY
  5. ESTRADIOL [Concomitant]
     Active Substance: ESTRADIOL
     Dosage: UNK, PATCH

REACTIONS (3)
  - Device use issue [Unknown]
  - Device breakage [Unknown]
  - Syringe issue [Unknown]
